FAERS Safety Report 8617758-8 (Version None)
Quarter: 2012Q3

REPORT INFORMATION
  Report Type: 
  Country: None (occurrence: None)
  Receive Date: 20120824
  Receipt Date: 20120820
  Transmission Date: 20120928
  Serious: Yes (Hospitalization, Disabling, Other)
  Sender: FDA-Public Use
  Company Number: US-009507513-1106USA00663

PATIENT

DRUGS (10)
  1. FOSAMAX [Suspect]
     Indication: OSTEOPENIA
     Dosage: UNK
     Route: 048
     Dates: start: 20030901
  2. FOSAMAX PLUS D [Suspect]
     Dosage: UNK
     Route: 048
     Dates: start: 20090401
  3. THYROID TAB [Concomitant]
     Dates: start: 19710101
  4. FOSAMAX PLUS D [Suspect]
     Indication: OSTEOPENIA
     Dosage: 70MG/5600
     Route: 048
     Dates: start: 20081201
  5. CALCIUM (UNSPECIFIED) [Concomitant]
     Dates: start: 20010101
  6. VITAMIN D [Concomitant]
     Dates: start: 20010101
  7. SYNTHROID [Concomitant]
     Indication: HYPOTHYROIDISM
     Dates: start: 20010101
  8. FOSAMAX [Suspect]
     Indication: OSTEOPOROSIS
     Dosage: 70 MG, QW
     Route: 048
     Dates: start: 20040101, end: 20051219
  9. FOSAMAX PLUS D [Suspect]
     Indication: OSTEOPOROSIS
     Dosage: 70MG/2800
     Route: 048
     Dates: start: 20060218, end: 20091217
  10. CHONDROITIN SULFATE SODIUM (+) GLUCOSAMINE SULFATE [Concomitant]
     Dates: start: 20010101

REACTIONS (35)
  - NAUSEA [None]
  - SPINAL COLUMN STENOSIS [None]
  - FACET JOINT SYNDROME [None]
  - GAIT DISTURBANCE [None]
  - ARTHRITIS [None]
  - INTERVERTEBRAL DISC DEGENERATION [None]
  - TOOTH FRACTURE [None]
  - EAR PAIN [None]
  - HYPERTENSION [None]
  - FALL [None]
  - SPINAL DISORDER [None]
  - FRACTURE NONUNION [None]
  - JAW DISORDER [None]
  - DEVICE FAILURE [None]
  - JOINT SWELLING [None]
  - MYALGIA [None]
  - LOW TURNOVER OSTEOPATHY [None]
  - IMPAIRED HEALING [None]
  - BURSITIS [None]
  - HYPOAESTHESIA [None]
  - NOCTURIA [None]
  - GASTROOESOPHAGEAL REFLUX DISEASE [None]
  - SPINAL HAEMANGIOMA [None]
  - BLOOD PRESSURE INCREASED [None]
  - FEMUR FRACTURE [None]
  - OSTEOPOROSIS [None]
  - TOOTH DISORDER [None]
  - HYPERLIPIDAEMIA [None]
  - PRESYNCOPE [None]
  - HYPERCHOLESTEROLAEMIA [None]
  - ANXIETY [None]
  - DYSPEPSIA [None]
  - VOMITING [None]
  - MUSCULAR WEAKNESS [None]
  - TOOTH ABSCESS [None]
